FAERS Safety Report 6054110-6 (Version None)
Quarter: 2009Q1

REPORT INFORMATION
  Report Type: 
  Country: None (occurrence: None)
  Receive Date: 20090123
  Receipt Date: 20090123
  Transmission Date: 20090719
  Serious: Yes (Other)
  Sender: FDA-Public Use
  Company Number: None

PATIENT
  Sex: Female
  Weight: 21.7727 kg

DRUGS (1)
  1. VYVANSE [Suspect]
     Indication: ATTENTION DEFICIT/HYPERACTIVITY DISORDER
     Dosage: 20 MG ONCE A DAY PO
     Route: 048
     Dates: start: 20081227, end: 20090111

REACTIONS (7)
  - ABNORMAL BEHAVIOUR [None]
  - DEPRESSED MOOD [None]
  - INSOMNIA [None]
  - MOOD ALTERED [None]
  - PERSONALITY DISORDER [None]
  - SUICIDAL IDEATION [None]
  - THINKING ABNORMAL [None]
